FAERS Safety Report 13925523 (Version 1)
Quarter: 2017Q3

REPORT INFORMATION
  Report Type: Spontaneous
  Country: US (occurrence: US)
  Receive Date: 20170831
  Receipt Date: 20170831
  Transmission Date: 20171127
  Serious: No
  Sender: FDA-Public Use
  Company Number: US-SA-2017SA097972

PATIENT
  Age: 65 Year
  Sex: Female

DRUGS (6)
  1. SOLOSTAR [Concomitant]
     Active Substance: DEVICE
  2. SOLOSTAR [Concomitant]
     Active Substance: DEVICE
     Dates: start: 201705
  3. SOLIQUA 100/33 [Suspect]
     Active Substance: INSULIN GLARGINE\LIXISENATIDE
     Indication: TYPE 2 DIABETES MELLITUS
     Dosage: DOSE: 45-50 UNITS
     Route: 065
     Dates: start: 201705
  4. SOLOSTAR [Concomitant]
     Active Substance: DEVICE
     Dates: start: 201703, end: 201705
  5. LANTUS SOLOSTAR [Concomitant]
     Active Substance: INSULIN GLARGINE
  6. SOLIQUA 100/33 [Suspect]
     Active Substance: INSULIN GLARGINE\LIXISENATIDE
     Indication: TYPE 2 DIABETES MELLITUS
     Dosage: DOSE:30 UNIT(S)
     Route: 065
     Dates: start: 201703, end: 201705

REACTIONS (1)
  - Blood glucose increased [Unknown]
